FAERS Safety Report 20394102 (Version 3)
Quarter: 2022Q1

REPORT INFORMATION
  Report Type: Report from Study
  Country: GB (occurrence: GB)
  Receive Date: 20220129
  Receipt Date: 20220331
  Transmission Date: 20220423
  Serious: Yes (Hospitalization, Other)
  Sender: FDA-Public Use
  Company Number: GB-CELLTRION INC.-2022GB000676

PATIENT

DRUGS (62)
  1. TRASTUZUMAB [Suspect]
     Active Substance: TRASTUZUMAB
     Indication: Breast cancer metastatic
     Dosage: 600 MG EVERY 3 WEEKS (CUMULATIVE DOSE TO FIRST REACTION: 60914.285 MG)
     Route: 058
     Dates: start: 20151231, end: 20190308
  2. TRASTUZUMAB [Suspect]
     Active Substance: TRASTUZUMAB
     Dosage: 600 MG EVERY 3 WEEKS (CUMULATIVE DOSE TO FIRST REACTION: 60914.285 MG)
     Route: 058
     Dates: start: 20151231, end: 20190308
  3. TRASTUZUMAB [Suspect]
     Active Substance: TRASTUZUMAB
     Dosage: 600 MG EVERY 3 WEEKS (CUMULATIVE DOSE TO FIRST REACTION: 14286.904 MG)
     Route: 058
     Dates: start: 20200619, end: 20210730
  4. TRASTUZUMAB [Suspect]
     Active Substance: TRASTUZUMAB
     Dosage: 600 MG EVERY 3 WEEKS (CUMULATIVE DOSE TO FIRST REACTION: 14286.904 MG)
     Route: 058
     Dates: start: 20200619, end: 20210730
  5. CAPECITABINE [Suspect]
     Active Substance: CAPECITABINE
     Indication: Breast cancer metastatic
     Dosage: 1800 MG, OTHER (PHARMACEUTICAL DOSE FORM: 245)
     Route: 048
     Dates: start: 20200619, end: 20200820
  6. CAPECITABINE [Suspect]
     Active Substance: CAPECITABINE
     Dosage: 1800 MG, OTHER (PHARMACEUTICAL DOSE FORM: 245)
     Route: 048
     Dates: start: 20200619, end: 20200820
  7. CAPECITABINE [Suspect]
     Active Substance: CAPECITABINE
     Dosage: 1800 MG, OTHER (PHARMACEUTICAL DOSE FORM: 245)
     Route: 048
     Dates: start: 20200619, end: 20200820
  8. CAPECITABINE [Suspect]
     Active Substance: CAPECITABINE
     Dosage: 3000 MG ONCE DAILY (PHARMACEUTICAL DOSE FORM: 245, CUMULATIVE DOSE TO FIRST REACTION: 1311125.0 MG)
     Route: 048
     Dates: start: 20200821, end: 20210225
  9. CAPECITABINE [Suspect]
     Active Substance: CAPECITABINE
     Dosage: 1000 OTHER, ONCE DAILY (PHARMACEUTICAL DOSE FORM: 245, CUMULATIVE DOSE TO FIRST REACTION: 496000.0 M
     Route: 048
     Dates: start: 20210226, end: 20210813
  10. DOCETAXEL [Suspect]
     Active Substance: DOCETAXEL
     Indication: Breast cancer metastatic
     Dosage: 180 MG EVERY 3 WEEKS (CUMULATIVE DOSE TO FIRST REACTION: 18274.285 MG)
     Route: 042
     Dates: start: 20151231, end: 20160212
  11. LETROZOLE [Suspect]
     Active Substance: LETROZOLE
     Indication: Breast cancer metastatic
     Dosage: 2.5 EVERY DAY
     Route: 048
     Dates: start: 20160407, end: 20181129
  12. PACLITAXEL [Suspect]
     Active Substance: PACLITAXEL
     Indication: Breast cancer metastatic
     Dosage: 111 MG EVERY 3 WEEKS (CUMULATIVE DOSE: 10893.857 MG)
     Route: 042
     Dates: start: 20160311, end: 20160324
  13. TAMOXIFEN [Suspect]
     Active Substance: TAMOXIFEN
     Indication: Breast cancer metastatic
     Dosage: 20 MG ONCE DAILY (PHARMACEUTICAL DOSE FORM: 82)
     Route: 048
     Dates: start: 20181130, end: 20190328
  14. ADO-TRASTUZUMAB EMTANSINE [Suspect]
     Active Substance: ADO-TRASTUZUMAB EMTANSINE
     Indication: Breast cancer metastatic
     Dosage: 300 MG EVERY 3 WEEKS (CUMULATIVE DOSE TO FIRST REACTION: 3000.5952 MG)
     Route: 042
     Dates: start: 20210405
  15. ENHERTU [Suspect]
     Active Substance: FAM-TRASTUZUMAB DERUXTECAN-NXKI
     Indication: Breast cancer metastatic
     Dosage: UNK
     Route: 041
     Dates: start: 20200619, end: 20210730
  16. ENHERTU [Suspect]
     Active Substance: FAM-TRASTUZUMAB DERUXTECAN-NXKI
     Dosage: UNK
     Route: 041
     Dates: start: 20211029
  17. ENHERTU [Suspect]
     Active Substance: FAM-TRASTUZUMAB DERUXTECAN-NXKI
     Dosage: UNK
     Route: 041
     Dates: start: 20151231, end: 20190308
  18. ACETIC ACID [Concomitant]
     Active Substance: ACETIC ACID
     Dosage: 3 DAILY, (PHARMACEUTICAL DOSE FORM: 400)
     Route: 065
     Dates: start: 20181119, end: 20181127
  19. ACYCLOVIR [Concomitant]
     Active Substance: ACYCLOVIR
     Indication: Oral herpes
     Dosage: 2, DAILY (PHARMACEUTICA DOSE FORM: 245)
     Route: 048
     Dates: start: 20190606, end: 20190627
  20. AMOXICILLIN [Concomitant]
     Active Substance: AMOXICILLIN
     Dosage: UNK
     Route: 065
     Dates: start: 20181224
  21. BENZYDAMINE [Concomitant]
     Active Substance: BENZYDAMINE
     Dosage: 15 MG
     Route: 065
     Dates: start: 20200710
  22. CARBOMER [Concomitant]
     Active Substance: CARBOMER
     Dosage: 1 [DRP] (PHARMACEUTICAL DOSE FORM: 95)
     Route: 065
     Dates: start: 20160831
  23. CETIRIZINE [Concomitant]
     Active Substance: CETIRIZINE HYDROCHLORIDE
     Dosage: 10 MG (PHARMACEUTICAL DOSE FORM: 245)
     Route: 048
     Dates: start: 20170911
  24. CHLORHEXIDINE [Concomitant]
     Active Substance: CHLORHEXIDINE
     Dosage: 10 ML
     Route: 065
     Dates: start: 20200710
  25. CITRUS BERGAMIA [Concomitant]
     Dosage: UNK
     Route: 061
     Dates: start: 20200117, end: 20200117
  26. CLOBETASONE [Concomitant]
     Active Substance: CLOBETASONE
     Route: 061
  27. COCODAMOL [Concomitant]
     Active Substance: ACETAMINOPHEN\CODEINE PHOSPHATE
     Dosage: (PHARMACEUTICAL DOSE FORM: 245)
     Route: 048
     Dates: start: 20190719
  28. COCODAMOL [Concomitant]
     Active Substance: ACETAMINOPHEN\CODEINE PHOSPHATE
     Dosage: (PHARMACEUTICAL DOSE FORM: 245)
     Route: 048
     Dates: start: 20160211, end: 20180313
  29. COCODAMOL [Concomitant]
     Active Substance: ACETAMINOPHEN\CODEINE PHOSPHATE
     Dosage: (PHARMACEUTICAL DOSE FORM: )
     Route: 048
     Dates: start: 20180222, end: 20180422
  30. ESTRIOL [Concomitant]
     Active Substance: ESTRIOL
     Dosage: (PHARMACEUTICAL DOSE FORM: 17)
     Route: 065
     Dates: start: 20150415
  31. EUCALYPTUS OIL [Concomitant]
     Active Substance: EUCALYPTUS OIL
     Dosage: UNK
     Route: 061
     Dates: start: 20191219, end: 20191219
  32. EUMOVATE [Concomitant]
     Active Substance: CLOBETASONE BUTYRATE
     Dosage: (PHARMACEUTICAL DOSE FORM: 17)
     Route: 061
     Dates: start: 201904, end: 20190502
  33. EURAX HC [Concomitant]
     Indication: Rash
     Dosage: (PHARMACEUTICAL DOSE FORM: 17)
     Route: 061
     Dates: start: 20190516, end: 201906
  34. FEXOFENADINE [Concomitant]
     Active Substance: FEXOFENADINE HYDROCHLORIDE
     Dosage: 180 MG DAILY (PHARMACEUTICAL DOSE FORM: 245) (CUMULATIVE TO FIRST DOSE REACTION: 295567.5MG)
     Route: 048
     Dates: start: 20170504, end: 20170519
  35. FEXOFENADINE [Concomitant]
     Active Substance: FEXOFENADINE HYDROCHLORIDE
     Dosage: 180 MG (PHARMACEUTICAL DOSE FORM: 245)
     Route: 048
     Dates: start: 20190516
  36. FEXOFENADINE [Concomitant]
     Active Substance: FEXOFENADINE HYDROCHLORIDE
     Dosage: 180 MG (PHARMACEUTICAL DOSE FORM: 245)
     Route: 048
     Dates: start: 20180222, end: 20180422
  37. FLUCLOXACILLIN [Concomitant]
     Active Substance: FLUCLOXACILLIN
     Dosage: 1500 MG, DAILY (PHARMACEUTICAL DOSE FORM: 5) (CUMULATIVE DOSE TO FIRST REACTION: 1602000.0 MG)
     Route: 048
     Dates: start: 20181129, end: 20181210
  38. FLUCLOXACILLIN [Concomitant]
     Active Substance: FLUCLOXACILLIN
     Dosage: 2000 MG, DAILY (PHARMACEUTICAL DOSE FORM: 245) (CUMULATIVE TO FIRST DOSE REACTION: 41140000 MG)
     Route: 048
     Dates: start: 20160315, end: 2016
  39. FLUCLOXACILLIN [Concomitant]
     Active Substance: FLUCLOXACILLIN
     Dosage: 500 MG (PHARMACEUTICAL DOSE FORM: 5)
     Route: 048
     Dates: start: 20181129, end: 20181210
  40. FLUCONAZOLE [Concomitant]
     Active Substance: FLUCONAZOLE
     Dosage: 50 MG, DAILY (PHARMACEUTICAL DOSE FORM: 245)
     Route: 048
     Dates: start: 20160221, end: 20160228
  41. HYDROCORTISONE [Concomitant]
     Active Substance: HYDROCORTISONE
     Indication: Stomatitis
     Dosage: 2.5 MG
     Route: 065
     Dates: start: 20200710
  42. HYPROMELLOSES [Concomitant]
     Active Substance: HYPROMELLOSES
     Dosage: GTT
     Route: 065
     Dates: start: 20160831
  43. HERBALS\LAVANDULA ANGUSTIFOLIA WHOLE [Concomitant]
     Active Substance: HERBALS\LAVANDULA ANGUSTIFOLIA WHOLE
     Dosage: UNK
     Route: 061
     Dates: start: 20200117, end: 20200117
  44. LOPERAMIDE [Concomitant]
     Active Substance: LOPERAMIDE
     Dosage: 2 MG (PHARMACEUTICAL DOSE FORM: 245)
     Route: 048
     Dates: start: 20200619
  45. LOPERAMIDE [Concomitant]
     Active Substance: LOPERAMIDE
     Dosage: PHARMACEUTICAL DOSE FORM: 5)
     Route: 048
     Dates: start: 20150415
  46. MOMETASONE [Concomitant]
     Active Substance: MOMETASONE
     Dosage: 2 PUFF
     Route: 065
     Dates: start: 20120925
  47. OMEPRAZOLE [Concomitant]
     Active Substance: OMEPRAZOLE
     Dosage: 20 MG (PHARMACEUTICAL DOSE FORM: 245)
     Route: 048
     Dates: start: 20160212
  48. ONDANSETRON [Concomitant]
     Active Substance: ONDANSETRON
     Dosage: 8 MG (PHARMACEUTICAL DOSE FORM: 245)
     Route: 048
     Dates: start: 20160212
  49. OTOMIZE EAR SPRAY [Concomitant]
     Dosage: 3 DAILY, (PHARMACEUTICAL DOSE FORM: 245)
     Route: 065
     Dates: start: 20181120, end: 20181127
  50. OTOMIZE EAR SPRAY [Concomitant]
     Dosage: (PHARMACEUTICAL DOSE FORM: 400)
     Route: 065
     Dates: start: 20181120, end: 20181127
  51. ACETAMINOPHEN [Concomitant]
     Active Substance: ACETAMINOPHEN
     Dosage: 1 G (PHARMACEUTICAL DOSE FORM: 245)
     Route: 048
     Dates: start: 2017
  52. PARAFFIN [Concomitant]
     Active Substance: PARAFFIN
     Dosage: (PHARMACEUTICAL DOSE FORM: 17)
     Route: 061
     Dates: start: 20180403
  53. PEPPERMINT OIL [Concomitant]
     Active Substance: PEPPERMINT OIL
     Dosage: UNK
     Route: 061
     Dates: start: 20191219, end: 20191219
  54. CHLORPHENIRAMINE MALEATE [Concomitant]
     Active Substance: CHLORPHENIRAMINE MALEATE
     Dosage: 4 MG, (PHARMACEUTICAL DOSE FORM: 245)
     Route: 048
     Dates: start: 20160307, end: 20160307
  55. CHLORPHENIRAMINE MALEATE [Concomitant]
     Active Substance: CHLORPHENIRAMINE MALEATE
     Dosage: 4 MG, DAILY (PHARMACEUTICAL DOSE FORM: 245)
     Route: 048
     Dates: start: 201904, end: 20190502
  56. CHLORPHENIRAMINE MALEATE [Concomitant]
     Active Substance: CHLORPHENIRAMINE MALEATE
     Dosage: 4 MG (PHARMACEUTICAL DOSE FORM: 245)
     Route: 048
     Dates: start: 20190502, end: 20190515
  57. CHLORPHENIRAMINE MALEATE [Concomitant]
     Active Substance: CHLORPHENIRAMINE MALEATE
     Dosage: 4 MG, (PHARMACEUTICAL DOSE FORM: 245)
     Route: 048
     Dates: start: 20170503, end: 20170503
  58. PREDNISOLONE [Concomitant]
     Active Substance: PREDNISOLONE
     Dosage: UNK
     Route: 065
     Dates: start: 20181227
  59. EVENING PRIMROSE OIL [OENOTHERA BIENNIS] [Concomitant]
     Dosage: 1 G (PHARMACEUTICAL DOSE FORM: 245)
     Route: 048
     Dates: start: 2017
  60. ALBUTEROL [Concomitant]
     Active Substance: ALBUTEROL
     Dosage: 2 PUFF
     Route: 065
     Dates: start: 20000418
  61. SYMBICORT [Concomitant]
     Active Substance: BUDESONIDE\FORMOTEROL FUMARATE DIHYDRATE
     Dosage: 2 DAILY
     Route: 065
     Dates: start: 20190720
  62. SYMBICORT [Concomitant]
     Active Substance: BUDESONIDE\FORMOTEROL FUMARATE DIHYDRATE
     Dosage: 1 PUFF
     Route: 065
     Dates: start: 20151115, end: 20190719

REACTIONS (4)
  - Toxicity to various agents [Recovered/Resolved]
  - Nausea [Recovered/Resolved]
  - Diarrhoea [Recovered/Resolved]
  - Off label use [Unknown]

NARRATIVE: CASE EVENT DATE: 20211101
